FAERS Safety Report 8789900 (Version 1)
Quarter: 2012Q4

REPORT INFORMATION
  Report Type: 
  Country: US (occurrence: US)
  Receive Date: 20120917
  Receipt Date: 20120917
  Transmission Date: 20130627
  Serious: Yes (Hospitalization, Other)
  Sender: FDA-Public Use
  Company Number: US-JNJFOC-20120904902

PATIENT
  Age: 33 Year
  Sex: Male
  Weight: 70.3 kg

DRUGS (27)
  1. NICOTROL [Suspect]
     Indication: SMOKING CESSATION THERAPY
     Route: 055
  2. UNKNOWN MEDICATION [Suspect]
     Indication: SMOKING CESSATION THERAPY
     Route: 065
  3. UNKNOWN MEDICATION [Suspect]
     Indication: SMOKING CESSATION THERAPY
     Route: 065
  4. VIAGRA [Suspect]
     Indication: ERECTILE DYSFUNCTION
     Route: 065
  5. NEURONTIN [Suspect]
     Indication: NERVE INJURY
     Route: 065
  6. NEURONTIN [Suspect]
     Indication: NERVE INJURY
     Route: 065
  7. NEURONTIN [Suspect]
     Indication: ANXIETY
     Route: 065
  8. NEURONTIN [Suspect]
     Indication: ANXIETY
     Route: 065
  9. CHANTIX [Suspect]
     Indication: SMOKING CESSATION THERAPY
     Route: 065
  10. WELLBUTRIN [Suspect]
     Indication: PRODUCT USED FOR UNKNOWN INDICATION
     Route: 065
  11. TESTOSTERONE [Concomitant]
     Route: 065
  12. CRESTOR [Concomitant]
     Route: 065
  13. MARINOL [Concomitant]
     Route: 065
  14. LOPRESSOR [Concomitant]
     Route: 065
  15. PROTONIX [Concomitant]
     Route: 065
  16. PLAVIX [Concomitant]
     Route: 065
  17. CYMBALTA [Concomitant]
     Route: 065
  18. EFFEXOR [Concomitant]
     Route: 065
  19. NITROGLYCERIN [Concomitant]
     Indication: CHEST PAIN
     Route: 065
  20. CLONIDINE [Concomitant]
     Route: 065
  21. PROAIR HFA [Concomitant]
     Route: 065
  22. BYSTOLIC [Concomitant]
     Route: 065
  23. LOVAZA [Concomitant]
     Route: 065
  24. COREG [Concomitant]
     Route: 065
  25. CARDIZEM [Concomitant]
     Route: 065
  26. SAIZEN [Concomitant]
     Route: 065
  27. COUMADIN [Concomitant]
     Route: 065

REACTIONS (8)
  - Cardiac failure [Unknown]
  - Anaemia [Unknown]
  - Renal failure [Unknown]
  - Cardiovascular disorder [Unknown]
  - Lung neoplasm malignant [Unknown]
  - Pulmonary oedema [Unknown]
  - Thrombosis [Unknown]
  - Drug ineffective [Unknown]
